FAERS Safety Report 7197419-5 (Version None)
Quarter: 2010Q4

REPORT INFORMATION
  Report Type: 
  Country: None (occurrence: None)
  Receive Date: 20101210
  Receipt Date: 20101207
  Transmission Date: 20110411
  Serious: Yes (Death, Life-Threatening, Hospitalization, Other)
  Sender: FDA-Public Use
  Company Number: 2010SP063386

PATIENT
  Age: 60 Year
  Sex: Female

DRUGS (4)
  1. TEMODAL [Suspect]
     Indication: GLIOBLASTOMA
     Dosage: 75 MG/M2; QD; PO
     Route: 048
     Dates: start: 20100621, end: 20100727
  2. MEDROL [Concomitant]
  3. KEPPRA [Concomitant]
  4. LOVENOX [Concomitant]

REACTIONS (1)
  - FEBRILE BONE MARROW APLASIA [None]
